FAERS Safety Report 8399786-3 (Version None)
Quarter: 2012Q2

REPORT INFORMATION
  Report Type: 
  Country: None (occurrence: None)
  Receive Date: 20120531
  Receipt Date: 20120529
  Transmission Date: 20120825
  Serious: Yes (Life-Threatening, Hospitalization)
  Sender: FDA-Public Use
  Company Number: PHEH2012US010787

PATIENT
  Sex: Female
  Weight: 54.422 kg

DRUGS (1)
  1. GILENYA [Suspect]
     Indication: MULTIPLE SCLEROSIS
     Dosage: 0.5 MG, QD
     Route: 048
     Dates: start: 20120523, end: 20120523

REACTIONS (3)
  - CHEST DISCOMFORT [None]
  - MALAISE [None]
  - HEART RATE DECREASED [None]
